FAERS Safety Report 9780352 (Version 2)
Quarter: 2014Q1

REPORT INFORMATION
  Report Type: Spontaneous
  Country: IT (occurrence: IT)
  Receive Date: 20131224
  Receipt Date: 20140210
  Transmission Date: 20141002
  Serious: Yes (Life-Threatening)
  Sender: FDA-Public Use
  Company Number: IT-ROCHE-1324690

PATIENT
  Age: 59 Year
  Sex: Female

DRUGS (5)
  1. AVASTIN [Suspect]
     Indication: COLON CANCER
     Route: 042
     Dates: start: 20130115, end: 20130522
  2. HYDROXOCOBALAMIN [Concomitant]
  3. FOLINIC ACID [Concomitant]
  4. IRINOTECAN [Concomitant]
  5. FLUOROURACIL [Concomitant]

REACTIONS (3)
  - Cyanosis [Recovering/Resolving]
  - Venous thrombosis [Recovering/Resolving]
  - Venous insufficiency [Recovering/Resolving]
